FAERS Safety Report 9558468 (Version 2)
Quarter: 2013Q3

REPORT INFORMATION
  Report Type: Spontaneous
  Country: TR (occurrence: TR)
  Receive Date: 20130926
  Receipt Date: 20130926
  Transmission Date: 20140515
  Serious: Yes (Other)
  Sender: FDA-Public Use
  Company Number: TR-ABBVIE-11P-161-0852540-00

PATIENT
  Age: 72 Year
  Sex: Female

DRUGS (3)
  1. ADALIMUMAB [Suspect]
     Indication: RHEUMATOID ARTHRITIS
  2. ETANERCEPT [Suspect]
     Indication: RHEUMATOID ARTHRITIS
  3. STEROID [Concomitant]
     Indication: OSTEOARTHRITIS
     Route: 014

REACTIONS (3)
  - Pulmonary tuberculosis [Unknown]
  - Joint tuberculosis [Recovering/Resolving]
  - Arthritis [Recovering/Resolving]
